FAERS Safety Report 9636437 (Version 1)
Quarter: 2013Q4

REPORT INFORMATION
  Report Type: Spontaneous
  Country: US (occurrence: US)
  Receive Date: 20131021
  Receipt Date: 20131021
  Transmission Date: 20140711
  Serious: No
  Sender: FDA-Public Use
  Company Number: US-PFIZER INC-2013296618

PATIENT
  Age: 65 Year
  Sex: Female
  Weight: 72.56 kg

DRUGS (3)
  1. MEDROL [Suspect]
     Indication: ASTHMA
     Dosage: 4 MG, 1X/DAY
     Route: 048
  2. MEDROL [Suspect]
     Indication: RHEUMATOID ARTHRITIS
     Dosage: 2 MG, 1X/DAY
     Route: 048
  3. MEDROL [Suspect]
     Dosage: 4 MG, 1X/DAY
     Route: 048

REACTIONS (2)
  - Drug ineffective [Unknown]
  - Pain [Unknown]
